FAERS Safety Report 6035013-X (Version None)
Quarter: 2009Q1

REPORT INFORMATION
  Report Type: 
  Country: None (occurrence: None)
  Receive Date: 20090109
  Receipt Date: 20090109
  Transmission Date: 20090719
  Serious: Yes (Other)
  Sender: FDA-Public Use
  Company Number: None

PATIENT
  Age: 67 Year
  Sex: Male
  Weight: 83.0083 kg

DRUGS (1)
  1. ZOLPIDEM TARTRATE 10MG APOTEX [Suspect]
     Indication: INSOMNIA
     Dosage: 10MG QHS PO
     Route: 048

REACTIONS (3)
  - ARRHYTHMIA [None]
  - DIZZINESS [None]
  - VENTRICULAR TACHYCARDIA [None]
